FAERS Safety Report 7729022-X (Version None)
Quarter: 2011Q3

REPORT INFORMATION
  Report Type: 
  Country: None (occurrence: None)
  Receive Date: 20110906
  Receipt Date: 20110830
  Transmission Date: 20111222
  Serious: Yes (Other)
  Sender: FDA-Public Use
  Company Number: BR-BRISTOL-MYERS SQUIBB COMPANY-16026775

PATIENT
  Age: 50 Year
  Sex: Male
  Weight: 77 kg

DRUGS (3)
  1. ONGLYZA [Suspect]
     Indication: DIABETES MELLITUS
     Dosage: INTER ON JAN2011 AND RESTARTED ON 30AUG2011
     Route: 048
     Dates: start: 20101101
  2. GLUCOVANCE [Suspect]
     Indication: DIABETES MELLITUS
     Dosage: INTER ON JAN2011
     Dates: start: 20100101
  3. METFORMIN HCL [Suspect]
     Indication: DIABETES MELLITUS
     Dosage: INTER ON JAN2011
     Dates: start: 20100101

REACTIONS (1)
  - TUBERCULOSIS [None]
